FAERS Safety Report 15367947 (Version 1)
Quarter: 2018Q3

REPORT INFORMATION
  Report Type: Spontaneous
  Country: US (occurrence: US)
  Receive Date: 20180904
  Receipt Date: 20180904
  Transmission Date: 20181010
  Serious: Yes (Disabling, Other)
  Sender: FDA-Public Use
  Company Number: None

PATIENT
  Age: 66 Year
  Sex: Male
  Weight: 82.35 kg

DRUGS (2)
  1. FINASTERIDE. [Concomitant]
     Active Substance: FINASTERIDE
  2. DUPIXENT [Suspect]
     Active Substance: DUPILUMAB
     Indication: DERMATITIS ATOPIC
     Dosage: ?          QUANTITY:1 INJECTION(S);OTHER FREQUENCY:EVERY OTHER WEEK;?
     Route: 058
     Dates: start: 20180422, end: 20180722

REACTIONS (4)
  - Alopecia [None]
  - Dry eye [None]
  - Alopecia areata [None]
  - Eye pain [None]

NARRATIVE: CASE EVENT DATE: 20180522
